FAERS Safety Report 7863190-4 (Version None)
Quarter: 2011Q4

REPORT INFORMATION
  Report Type: 
  Country: None (occurrence: None)
  Receive Date: 20111027
  Receipt Date: 20101129
  Transmission Date: 20120403
  Serious: No
  Sender: FDA-Public Use
  Company Number: US-AMGEN-KDL430010

PATIENT
  Age: 62 Year
  Sex: Female

DRUGS (4)
  1. ENBREL [Suspect]
     Indication: RHEUMATOID ARTHRITIS
     Dosage: 50 MG, QWK
     Route: 058
     Dates: start: 20100726
  2. ENBREL [Suspect]
     Dates: start: 20100901, end: 20101028
  3. METHOTREXATE [Concomitant]
     Dosage: UNK UNK, UNK
  4. ENBREL [Suspect]
     Dates: start: 20100901, end: 20101108

REACTIONS (9)
  - BACK PAIN [None]
  - BLOOD CHOLESTEROL INCREASED [None]
  - INJECTION SITE PAIN [None]
  - RHEUMATOID ARTHRITIS [None]
  - ONYCHOMYCOSIS [None]
  - INJURY ASSOCIATED WITH DEVICE [None]
  - INJECTION SITE HAEMORRHAGE [None]
  - SINUSITIS [None]
  - NERVE COMPRESSION [None]
